FAERS Safety Report 11235206 (Version 2)
Quarter: 2015Q4

REPORT INFORMATION
  Report Type: Report from Study
  Country: US (occurrence: US)
  Receive Date: 20150702
  Receipt Date: 20151027
  Transmission Date: 20160304
  Serious: Yes (Hospitalization)
  Sender: FDA-Public Use
  Company Number: US-ACTELION-A-NJ2015-118403

PATIENT
  Age: 41 Year
  Sex: Female

DRUGS (3)
  1. REVATIO [Concomitant]
     Active Substance: SILDENAFIL CITRATE
  2. MACITENTAN [Suspect]
     Active Substance: MACITENTAN
     Indication: PULMONARY ARTERIAL HYPERTENSION
     Dosage: 10 MG, QD
     Route: 048
     Dates: start: 20140930
  3. REMODULIN [Suspect]
     Active Substance: TREPROSTINIL
     Indication: PRODUCT USED FOR UNKNOWN INDICATION
     Route: 058

REACTIONS (15)
  - Infusion site pain [Unknown]
  - Fatigue [Unknown]
  - Renal pain [Unknown]
  - Chromaturia [Unknown]
  - Infusion site infection [Unknown]
  - Bloody discharge [Unknown]
  - Urine output decreased [Unknown]
  - Infusion site swelling [Unknown]
  - Infusion site warmth [Unknown]
  - Pain in extremity [Unknown]
  - Catheterisation cardiac [Unknown]
  - Infusion site erythema [Unknown]
  - Pyrexia [Unknown]
  - Oedema peripheral [Unknown]
  - Decreased appetite [Unknown]

NARRATIVE: CASE EVENT DATE: 201505
